FAERS Safety Report 10168194 (Version 2)
Quarter: 2015Q1

REPORT INFORMATION
  Report Type: Spontaneous
  Country: US (occurrence: US)
  Receive Date: 20140512
  Receipt Date: 20150309
  Transmission Date: 20150720
  Serious: No
  Sender: FDA-Public Use
  Company Number: US-ASTRAZENECA-2013SE76397

PATIENT
  Age: 59 Year
  Sex: Female
  Weight: 58.1 kg

DRUGS (10)
  1. WELLBUTRIN [Concomitant]
     Active Substance: BUPROPION HYDROCHLORIDE
  2. ERTHROMYCIN [Concomitant]
  3. SEROQUEL XR [Suspect]
     Active Substance: QUETIAPINE FUMARATE
     Route: 048
  4. IBUPROFEN. [Concomitant]
     Active Substance: IBUPROFEN
     Indication: PAIN
  5. LORAZEPAM. [Concomitant]
     Active Substance: LORAZEPAM
     Indication: ANXIETY
  6. CHANTIX [Concomitant]
     Active Substance: VARENICLINE TARTRATE
  7. FASLODEX [Suspect]
     Active Substance: FULVESTRANT
     Indication: BREAST CANCER METASTATIC
     Dosage: LOADING DOSE, EVERY TWO WEEKS
     Route: 030
  8. FASLODEX [Suspect]
     Active Substance: FULVESTRANT
     Indication: BREAST CANCER METASTATIC
     Dosage: MONTHLY
     Route: 030
     Dates: start: 20130923
  9. TRAMADOL [Concomitant]
     Active Substance: TRAMADOL
     Indication: PAIN
  10. LORAZEPAM. [Concomitant]
     Active Substance: LORAZEPAM
     Indication: AGITATION

REACTIONS (8)
  - Contusion [Unknown]
  - Injection site pain [Not Recovered/Not Resolved]
  - Hypoaesthesia [Unknown]
  - Intentional product misuse [Unknown]
  - Injection site mass [Unknown]
  - Constipation [Not Recovered/Not Resolved]
  - Burning sensation [Unknown]
  - Pain [Unknown]

NARRATIVE: CASE EVENT DATE: 2013
